FAERS Safety Report 16477904 (Version 1)
Quarter: 2019Q2

REPORT INFORMATION
  Report Type: Spontaneous
  Country: IT (occurrence: IT)
  Receive Date: 20190626
  Receipt Date: 20190626
  Transmission Date: 20190711
  Serious: Yes (Other)
  Sender: FDA-Public Use
  Company Number: IT-ACCORD-135171

PATIENT
  Age: 41 Year
  Sex: Male

DRUGS (2)
  1. ESCITALOPRAM [Suspect]
     Active Substance: ESCITALOPRAM OXALATE
     Indication: DEPRESSION
     Route: 048
     Dates: start: 20180417, end: 20180907
  2. XANAX [Suspect]
     Active Substance: ALPRAZOLAM
     Indication: ANXIETY
     Dosage: STRENGTH: 0,5 MG PROLONGED-RELEASE TABLETS
     Route: 048
     Dates: start: 20180417, end: 20180907

REACTIONS (3)
  - Anxiety [Recovered/Resolved]
  - Depression [Recovered/Resolved]
  - Therapeutic product ineffective [Unknown]

NARRATIVE: CASE EVENT DATE: 20180907
